FAERS Safety Report 14898313 (Version 2)
Quarter: 2018Q2

REPORT INFORMATION
  Report Type: Spontaneous
  Country: US (occurrence: US)
  Receive Date: 20180515
  Receipt Date: 20180517
  Transmission Date: 20180711
  Serious: No
  Sender: FDA-Public Use
  Company Number: US-SA-2018SA107752

PATIENT
  Age: 59 Year
  Sex: Male

DRUGS (2)
  1. SOLOSTAR [Suspect]
     Active Substance: DEVICE
     Indication: TYPE 2 DIABETES MELLITUS
     Dosage: FREQUENCY-50 UNITS Q AM AND 50 UNITS Q PM FOR A TOTAL OF 100 UNITS PER DAY
     Dates: start: 2016
  2. TOUJEO [Suspect]
     Active Substance: INSULIN GLARGINE
     Indication: TYPE 2 DIABETES MELLITUS
     Dosage: FREQUENCY-50 UNITS Q AM AND 50 UNITS Q PM FOR A TOTAL OF 100 UNITS PER DAY DOSE:100 UNIT(S)
     Route: 051
     Dates: start: 2016

REACTIONS (1)
  - Product use issue [Unknown]
